APPROVED DRUG PRODUCT: AKNE-MYCIN
Active Ingredient: ERYTHROMYCIN
Strength: 2%
Dosage Form/Route: OINTMENT;TOPICAL
Application: N050584 | Product #001
Applicant: BAUSCH HEALTH AMERICAS INC
Approved: Jan 10, 1985 | RLD: Yes | RS: No | Type: DISCN